APPROVED DRUG PRODUCT: TOVALT ODT
Active Ingredient: ZOLPIDEM TARTRATE
Strength: 5MG
Dosage Form/Route: TABLET, ORALLY DISINTEGRATING;ORAL
Application: N021412 | Product #001
Applicant: BIOVAIL LABORATORIES INTERNATIONAL SRL
Approved: Apr 25, 2007 | RLD: Yes | RS: No | Type: DISCN